FAERS Safety Report 16174415 (Version 1)
Quarter: 2019Q2

REPORT INFORMATION
  Report Type: Report from Study
  Country: BR (occurrence: BR)
  Receive Date: 20190409
  Receipt Date: 20190409
  Transmission Date: 20190711
  Serious: Yes (Other)
  Sender: FDA-Public Use
  Company Number: PHHY2018BR108504

PATIENT
  Age: 69 Year
  Sex: Female
  Weight: 56.5 kg

DRUGS (2)
  1. SIMVASTATIN. [Suspect]
     Active Substance: SIMVASTATIN
     Indication: BLOOD CHOLESTEROL INCREASED
     Dosage: UNK
     Route: 065
  2. ACLASTA [Suspect]
     Active Substance: ZOLEDRONIC ACID
     Indication: OSTEOPOROSIS
     Dosage: 1 DF (5 MG/100 ML), Q12MO
     Route: 042
     Dates: start: 20180309

REACTIONS (10)
  - Fall [Unknown]
  - Joint swelling [Recovered/Resolved]
  - Blood cholesterol decreased [Not Recovered/Not Resolved]
  - Malaise [Unknown]
  - Viral infection [Unknown]
  - Arthralgia [Recovered/Resolved]
  - Myalgia [Unknown]
  - Vitamin D decreased [Unknown]
  - Lumbar vertebral fracture [Unknown]
  - Diarrhoea [Unknown]

NARRATIVE: CASE EVENT DATE: 20190401
